FAERS Safety Report 11839184 (Version 1)
Quarter: 2015Q4

REPORT INFORMATION
  Report Type: Report from Study
  Country: US (occurrence: US)
  Receive Date: 20151216
  Receipt Date: 20151216
  Transmission Date: 20160305
  Serious: No
  Sender: FDA-Public Use
  Company Number: PHHY2015US159974

PATIENT
  Age: 37 Year
  Sex: Female

DRUGS (1)
  1. GILENYA [Suspect]
     Active Substance: FINGOLIMOD HYDROCHLORIDE
     Indication: MULTIPLE SCLEROSIS
     Dosage: QD
     Route: 048

REACTIONS (9)
  - Dizziness [Unknown]
  - Contusion [Unknown]
  - Muscle spasms [Unknown]
  - Intraocular pressure test abnormal [Unknown]
  - Chest pain [Unknown]
  - Nausea [Unknown]
  - Disturbance in attention [Unknown]
  - Formication [Unknown]
  - Vomiting [Unknown]

NARRATIVE: CASE EVENT DATE: 20150513
